FAERS Safety Report 13668378 (Version 1)
Quarter: 2017Q2

REPORT INFORMATION
  Report Type: Spontaneous
  Country: US (occurrence: US)
  Receive Date: 20170619
  Receipt Date: 20170619
  Transmission Date: 20170830
  Serious: No
  Sender: FDA-Public Use
  Company Number: None

PATIENT
  Age: 50 Year
  Sex: Female
  Weight: 81 kg

DRUGS (12)
  1. RESTORIL [Concomitant]
     Active Substance: TEMAZEPAM
  2. BRISDELLE [Suspect]
     Active Substance: PAROXETINE MESYLATE
     Indication: INSOMNIA
     Dates: start: 20170110
  3. VITAMIN D [Concomitant]
     Active Substance: CHOLECALCIFEROL
  4. MOTRIN [Concomitant]
     Active Substance: IBUPROFEN
  5. BRISDELLE [Suspect]
     Active Substance: PAROXETINE MESYLATE
     Indication: HOT FLUSH
     Dates: start: 20170110
  6. BENADRYL [Concomitant]
     Active Substance: DIPHENHYDRAMINE HYDROCHLORIDE
  7. ZYRTEC [Concomitant]
     Active Substance: CETIRIZINE HYDROCHLORIDE
  8. SYNTHROID [Concomitant]
     Active Substance: LEVOTHYROXINE SODIUM
  9. VITAMIN C [Concomitant]
     Active Substance: ASCORBIC ACID
  10. VITAMIN B COMPLEX [Concomitant]
     Active Substance: CYANOCOBALAMIN\DEXPANTHENOL\NIACINAMIDE\PYRIDOXINE HYDROCHLORIDE\RIBOFLAVIN 5^-PHOSPHATE SODIUM\THIAMINE HYDROCHLORIDE\VITAMIN B COMPLEX
  11. MAGNESIUM [Concomitant]
     Active Substance: MAGNESIUM
  12. MVI [Concomitant]
     Active Substance: VITAMINS

REACTIONS (5)
  - Fear [None]
  - Palpitations [None]
  - Insomnia [None]
  - Abdominal pain upper [None]
  - Nervousness [None]

NARRATIVE: CASE EVENT DATE: 20170110
